FAERS Safety Report 8068166-2 (Version None)
Quarter: 2012Q1

REPORT INFORMATION
  Report Type: 
  Country: None (occurrence: None)
  Receive Date: 20120124
  Receipt Date: 20110901
  Transmission Date: 20120608
  Serious: No
  Sender: FDA-Public Use
  Company Number: US-AMGEN-USASP2011045051

PATIENT
  Age: 86 Year
  Sex: Female

DRUGS (8)
  1. PROLIA [Suspect]
     Indication: OSTEOPOROSIS POSTMENOPAUSAL
     Dosage: 60 MG, Q6MO
     Dates: start: 20110401
  2. VITAMIN D [Concomitant]
     Dosage: 2000 IU, QD
  3. FISH OIL [Concomitant]
  4. SIMVASTATIN [Concomitant]
  5. IRON [Concomitant]
     Indication: ANAEMIA
  6. ANTIHYPERTENSIVES [Concomitant]
  7. AMLODIPINE [Concomitant]
  8. CALCIUM WITH VITAMIN D             /00944201/ [Concomitant]

REACTIONS (6)
  - PERONEAL NERVE PALSY [None]
  - PAIN IN EXTREMITY [None]
  - HYPOAESTHESIA [None]
  - GAIT DISTURBANCE [None]
  - BACK DISORDER [None]
  - FALL [None]
